FAERS Safety Report 6994420-9 (Version None)
Quarter: 2010Q3

REPORT INFORMATION
  Report Type: 
  Country: None (occurrence: None)
  Receive Date: 20100917
  Receipt Date: 20100909
  Transmission Date: 20110219
  Serious: Yes (Other)
  Sender: FDA-Public Use
  Company Number: MX-JNJFOC-20100903969

PATIENT
  Age: 22 Year
  Sex: Female
  Weight: 55 kg

DRUGS (2)
  1. ORTHO EVRA [Suspect]
     Indication: CONTRACEPTION
     Dosage: 6 MG NORELGESTROMIN AND 0.6 MG ETHINYLESTRADIOL
     Route: 062
  2. ISOPURE WHEY PROTEIN [Concomitant]
     Indication: WEIGHT INCREASED
     Route: 065

REACTIONS (2)
  - KIDNEY INFECTION [None]
  - WEIGHT DECREASED [None]
